FAERS Safety Report 9524092 (Version 1)
Quarter: 2013Q1

REPORT INFORMATION
  Report Type: Spontaneous
  Country: US (occurrence: None)
  Receive Date: 20130305
  Receipt Date: 20130305
  Transmission Date: 20140127
  Serious: Yes (Other)
  Sender: FDA-Public Use
  Company Number: 163-21880-12032743

PATIENT
  Age: 79 Year
  Sex: Female

DRUGS (1)
  1. REVLIMID [Suspect]
     Indication: CHRONIC LYMPHOCYTIC LEUKAEMIA
     Dosage: 5MG, EOD FOR 21 DAYS FOLLOWED BY 7 DAYS OFF, PO
     Route: 048
     Dates: start: 201101

REACTIONS (1)
  - Pneumonia respiratory syncytial viral [None]
